FAERS Safety Report 12655057 (Version 2)
Quarter: 2016Q3

REPORT INFORMATION
  Report Type: Spontaneous
  Country: US (occurrence: US)
  Receive Date: 20160816
  Receipt Date: 20160822
  Transmission Date: 20161109
  Serious: Yes (Hospitalization)
  Sender: FDA-Public Use
  Company Number: US-BAYER-2016-158816

PATIENT
  Age: 93 Year
  Sex: Female
  Weight: 68.48 kg

DRUGS (8)
  1. A AND D ORIGINAL [Suspect]
     Active Substance: LANOLIN\PETROLATUM
     Indication: SUNBURN
  2. A AND D ORIGINAL [Suspect]
     Active Substance: LANOLIN\PETROLATUM
     Indication: SKIN DISORDER
  3. BAYER LOW DOSE [Concomitant]
     Active Substance: ASPIRIN
     Indication: ISCHAEMIC HEART DISEASE PROPHYLAXIS
     Dosage: 1 DF, QD
     Route: 048
  4. CALCIUM [Concomitant]
     Active Substance: CALCIUM
  5. CYMBALTA [Concomitant]
     Active Substance: DULOXETINE HYDROCHLORIDE
  6. ALEVE [Suspect]
     Active Substance: NAPROXEN SODIUM
     Indication: ANALGESIC THERAPY
     Dosage: 1 DF, QD, TOOTK IT FOR A COUPLE OF YEARS
     Route: 048
  7. A AND D ORIGINAL [Suspect]
     Active Substance: LANOLIN\PETROLATUM
     Indication: SKIN IRRITATION
     Dosage: 1 DF, PRN (USED IT FOR 68 YEARS)
     Route: 061
     Dates: start: 1948
  8. VITAMIN C [Concomitant]
     Active Substance: ASCORBIC ACID

REACTIONS (2)
  - Product use issue [None]
  - Gastric ulcer [None]
